FAERS Safety Report 24916977 (Version 1)
Quarter: 2025Q1

REPORT INFORMATION
  Report Type: Spontaneous
  Country: US (occurrence: None)
  Receive Date: 20250201
  Receipt Date: 20250201
  Transmission Date: 20250408
  Serious: Yes (Other)
  Sender: FDA-CTU
  Company Number: None

PATIENT
  Age: 24 Year
  Sex: Female
  Weight: 73.8 kg

DRUGS (7)
  1. DOXEPIN [Suspect]
     Active Substance: DOXEPIN
     Indication: Sleep disorder
     Dosage: 30 CAPSULES AT BEDTIME ORAL
     Route: 048
  2. OXYBUTYNIN [Concomitant]
     Active Substance: OXYBUTYNIN
  3. LYRICA [Concomitant]
     Active Substance: PREGABALIN
  4. AJOVY [Concomitant]
     Active Substance: FREMANEZUMAB-VFRM
  5. linzes [Concomitant]
  6. SERTRALINE HYDROCHLORIDE [Concomitant]
     Active Substance: SERTRALINE HYDROCHLORIDE
  7. ESTRADIOL [Concomitant]
     Active Substance: ESTRADIOL

REACTIONS (4)
  - Sexual abuse [None]
  - Asthenia [None]
  - Brief resolved unexplained event [None]
  - Paralysis [None]

NARRATIVE: CASE EVENT DATE: 20241220
